FAERS Safety Report 7586293-0 (Version None)
Quarter: 2011Q2

REPORT INFORMATION
  Report Type: 
  Country: None (occurrence: None)
  Receive Date: 20110630
  Receipt Date: 20110630
  Transmission Date: 20111010
  Serious: Yes (Other)
  Sender: FDA-Public Use
  Company Number: None

PATIENT
  Age: 34 Year
  Sex: Female
  Weight: 54.4316 kg

DRUGS (1)
  1. LORATADINE [Suspect]
     Indication: SEASONAL ALLERGY
     Dosage: 10 MG PER TABLET ONCE DAILY PO
     Route: 048
     Dates: start: 20110601, end: 20110627

REACTIONS (5)
  - FEELING ABNORMAL [None]
  - IRRITABILITY [None]
  - INSOMNIA [None]
  - DEPRESSION [None]
  - MOOD ALTERED [None]
